FAERS Safety Report 10023760 (Version 3)
Quarter: 2014Q2

REPORT INFORMATION
  Report Type: Spontaneous
  Country: JP (occurrence: JP)
  Receive Date: 20140320
  Receipt Date: 20140425
  Transmission Date: 20141212
  Serious: Yes (Hospitalization, Disabling, Other)
  Sender: FDA-Public Use
  Company Number: JP-ASTRAZENECA-2014SE18954

PATIENT
  Age: 477 Month
  Sex: Female
  Weight: 60.5 kg

DRUGS (6)
  1. SEROQUEL [Suspect]
     Indication: BIPOLAR DISORDER
     Route: 048
     Dates: start: 201004
  2. RISPERDAL [Concomitant]
     Indication: BIPOLAR DISORDER
     Dates: start: 201004
  3. DEPAKENE-R [Concomitant]
     Indication: BIPOLAR DISORDER
     Dates: start: 201004
  4. LENDORMIN [Concomitant]
     Indication: BIPOLAR DISORDER
     Dates: start: 201004
  5. MYSLEE [Concomitant]
     Indication: BIPOLAR DISORDER
     Dates: start: 201004
  6. ROHYPNOL [Concomitant]
     Indication: BIPOLAR DISORDER
     Dates: start: 201004

REACTIONS (7)
  - Pulmonary embolism [Recovered/Resolved]
  - Deep vein thrombosis [Recovered/Resolved]
  - Chronic inflammatory demyelinating polyradiculoneuropathy [Recovering/Resolving]
  - Polyneuropathy [Unknown]
  - Activities of daily living impaired [Unknown]
  - Urinary retention [Unknown]
  - Off label use [Unknown]
